FAERS Safety Report 8252780-5 (Version None)
Quarter: 2012Q2

REPORT INFORMATION
  Report Type: 
  Country: None (occurrence: None)
  Receive Date: 20120402
  Receipt Date: 20110407
  Transmission Date: 20120825
  Serious: No
  Sender: FDA-Public Use
  Company Number: US-ABBOTT-11P-163-0804408-00

PATIENT
  Sex: Male
  Weight: 77.273 kg

DRUGS (3)
  1. TESTOSTERONE [Suspect]
     Dosage: DAILY DOSE: 1.25 GRAM(S) VIA PUMP
     Route: 062
     Dates: start: 20100401, end: 20100701
  2. TESTOSTERONE [Suspect]
     Indication: BLOOD TESTOSTERONE DECREASED
     Dosage: DAILY DOSE: 3.750 - 5 GRAM(S); 3 - 4 PUMPS PER DAY
     Route: 062
     Dates: start: 20090801, end: 20100401
  3. TESTOSTERONE [Suspect]
     Dosage: DAILY DOSE: 3.750 - 5 GRAM(S); 3 - 4 PUMPS PER DAY
     Route: 062
     Dates: start: 20100701

REACTIONS (2)
  - DRUG INEFFECTIVE [None]
  - DYSURIA [None]
